FAERS Safety Report 10112391 (Version 1)
Quarter: 2014Q2

REPORT INFORMATION
  Report Type: Spontaneous
  Country: US (occurrence: US)
  Receive Date: 20140425
  Receipt Date: 20140425
  Transmission Date: 20141212
  Serious: No
  Sender: FDA-Public Use
  Company Number: US-009507513-1404USA005103

PATIENT
  Sex: Female

DRUGS (2)
  1. ZIOPTAN [Suspect]
     Dosage: UNK
     Route: 047
  2. RESTASIS [Suspect]

REACTIONS (2)
  - Erythema [Unknown]
  - Drug dose omission [Unknown]
